FAERS Safety Report 5842658-6 (Version None)
Quarter: 2008Q3

REPORT INFORMATION
  Report Type: 
  Country: None (occurrence: None)
  Receive Date: 20080812
  Receipt Date: 20080802
  Transmission Date: 20090109
  Serious: Yes (Hospitalization, Other)
  Sender: FDA-Public Use
  Company Number: CA-ELI_LILLY_AND_COMPANY-CA200808001060

PATIENT
  Age: 61 Year
  Sex: Female

DRUGS (17)
  1. FORTEO [Suspect]
     Indication: OSTEOPOROSIS
     Dosage: 20 UG, DAILY (1/D)
     Route: 058
     Dates: start: 20080728
  2. METHOTREXATE [Concomitant]
  3. CELEBREX [Concomitant]
  4. OMEPRAZOLE [Concomitant]
  5. SYNTHROID [Concomitant]
  6. FOLIC ACID [Concomitant]
  7. CARBOCAL D [Concomitant]
  8. PLAQUENIL [Concomitant]
  9. REMICADE [Concomitant]
  10. PAXIL [Concomitant]
  11. LECTOPAM TAB [Concomitant]
  12. INDERAL [Concomitant]
  13. WELLBUTRIN [Concomitant]
  14. LOPERAMIDE HCL [Concomitant]
  15. CORTISONE [Concomitant]
  16. VAGIFEM [Concomitant]
  17. ARISTOSPAN [Concomitant]

REACTIONS (2)
  - ABDOMINAL PAIN [None]
  - PERITONITIS [None]
